FAERS Safety Report 7349322-5 (Version None)
Quarter: 2011Q1

REPORT INFORMATION
  Report Type: 
  Country: None (occurrence: None)
  Receive Date: 20110314
  Receipt Date: 20110228
  Transmission Date: 20110831
  Serious: Yes (Other)
  Sender: FDA-Public Use
  Company Number: TR-MYLANLABS-2011S1004175

PATIENT
  Sex: Male

DRUGS (3)
  1. FOLINIC ACID [Concomitant]
     Indication: GASTRIC CANCER
     Route: 065
  2. ETOPOSIDE [Concomitant]
     Indication: GASTRIC CANCER
     Route: 065
  3. FLUOROURACIL [Suspect]
     Indication: GASTRIC CANCER
     Route: 065

REACTIONS (1)
  - SINUS BRADYCARDIA [None]
